FAERS Safety Report 7550225-1 (Version None)
Quarter: 2011Q2

REPORT INFORMATION
  Report Type: 
  Country: None (occurrence: None)
  Receive Date: 20110615
  Receipt Date: 20110602
  Transmission Date: 20111010
  Serious: Yes (Hospitalization)
  Sender: FDA-Public Use
  Company Number: GB-MYLANLABS-2011S1011367

PATIENT
  Age: 85 Year
  Sex: Male

DRUGS (12)
  1. SALAMOL /00139501/ [Concomitant]
     Indication: PRODUCT USED FOR UNKNOWN INDICATION
  2. SENNA-MINT WAF [Concomitant]
     Indication: PRODUCT USED FOR UNKNOWN INDICATION
  3. QUETIAPINE [Suspect]
     Indication: ANXIETY
     Route: 048
     Dates: end: 20110512
  4. DIPYRIDAMOLE [Concomitant]
     Indication: PRODUCT USED FOR UNKNOWN INDICATION
  5. TAMSULOSIN HCL [Concomitant]
     Indication: PRODUCT USED FOR UNKNOWN INDICATION
  6. TEMAZEPAM [Concomitant]
     Indication: PRODUCT USED FOR UNKNOWN INDICATION
  7. DICLOFENAC SODIUM [Concomitant]
     Indication: PRODUCT USED FOR UNKNOWN INDICATION
  8. ACETAMINOPHEN [Concomitant]
     Indication: PRODUCT USED FOR UNKNOWN INDICATION
  9. VENLAFAXINE [Suspect]
     Indication: ANXIETY
     Route: 048
     Dates: end: 20110512
  10. FINASTERIDE [Concomitant]
     Indication: PRODUCT USED FOR UNKNOWN INDICATION
  11. ASPIRIN [Concomitant]
     Indication: PRODUCT USED FOR UNKNOWN INDICATION
  12. LANSOPRAZOLE [Concomitant]
     Indication: PRODUCT USED FOR UNKNOWN INDICATION

REACTIONS (4)
  - ELECTROCARDIOGRAM QT PROLONGED [None]
  - VENTRICULAR EXTRASYSTOLES [None]
  - COLD SWEAT [None]
  - HYPERHIDROSIS [None]
